FAERS Safety Report 20581882 (Version 1)
Quarter: 2022Q1

REPORT INFORMATION
  Report Type: Spontaneous
  Country: FR (occurrence: FR)
  Receive Date: 20220311
  Receipt Date: 20220311
  Transmission Date: 20220423
  Serious: Yes (Congenital Anomaly)
  Sender: FDA-Public Use
  Company Number: None

PATIENT
  Age: 0 Day
  Sex: Female

DRUGS (5)
  1. NEBIVOLOL [Suspect]
     Active Substance: NEBIVOLOL
     Dosage: 5 MILLIGRAM DAILY;
     Route: 064
     Dates: start: 202010, end: 202012
  2. SPIRONOLACTONE [Suspect]
     Active Substance: SPIRONOLACTONE
     Dosage: 25 MG/ 2 D
     Route: 064
     Dates: start: 202010, end: 202012
  3. LYMECYCLINE [Suspect]
     Active Substance: LYMECYCLINE
     Dosage: 300 MILLIGRAM DAILY;
     Route: 064
     Dates: start: 202010, end: 202012
  4. ALTHIAZIDE [Suspect]
     Active Substance: ALTHIAZIDE
     Dosage: 15 MG/ 2 D
     Route: 064
     Dates: start: 202010, end: 202012
  5. CHOLECALCIFEROL [Suspect]
     Active Substance: CHOLECALCIFEROL
     Dosage: EVERY TWO MONTHS
     Route: 064
     Dates: start: 202010, end: 202106

REACTIONS (4)
  - Pyramidal tract syndrome [Not Recovered/Not Resolved]
  - Dysmorphism [Not Recovered/Not Resolved]
  - Limb malformation [Not Recovered/Not Resolved]
  - Anorectal disorder [Not Recovered/Not Resolved]

NARRATIVE: CASE EVENT DATE: 20210623
